FAERS Safety Report 5823102-1 (Version None)
Quarter: 2008Q3

REPORT INFORMATION
  Report Type: 
  Country: None (occurrence: None)
  Receive Date: 20080725
  Receipt Date: 20070731
  Transmission Date: 20090109
  Serious: No
  Sender: FDA-Public Use
  Company Number: US-AMGEN-KDL236802

PATIENT
  Sex: Male
  Weight: 70.8 kg

DRUGS (3)
  1. PROCRIT [Suspect]
     Indication: PRE-EXISTING DISEASE
     Route: 058
     Dates: start: 20070501
  2. RIBAVIRIN [Concomitant]
     Route: 048
     Dates: start: 20070301
  3. PEGASYS [Concomitant]
     Dates: start: 20070301

REACTIONS (1)
  - INJECTION SITE PAIN [None]
